FAERS Safety Report 13624877 (Version 3)
Quarter: 2019Q3

REPORT INFORMATION
  Report Type: Spontaneous
  Country: US (occurrence: US)
  Receive Date: 20170607
  Receipt Date: 20190731
  Transmission Date: 20191004
  Serious: Yes (Other)
  Sender: FDA-Public Use
  Company Number: US-JNJFOC-20170520040

PATIENT
  Age: 51 Year
  Sex: Male

DRUGS (4)
  1. RISPERDAL [Suspect]
     Active Substance: RISPERIDONE
     Indication: PRODUCT USED FOR UNKNOWN INDICATION
     Dosage: 1MG - 2MG
     Route: 048
     Dates: start: 200009, end: 200010
  2. RISPERDAL [Suspect]
     Active Substance: RISPERIDONE
     Dosage: 1MG - 2MG
     Route: 048
     Dates: start: 200506, end: 200602
  3. RISPERDAL [Suspect]
     Active Substance: RISPERIDONE
     Route: 048
  4. RISPERDAL [Suspect]
     Active Substance: RISPERIDONE
     Route: 048
     Dates: end: 2011

REACTIONS (2)
  - Obesity [Unknown]
  - Gynaecomastia [Unknown]

NARRATIVE: CASE EVENT DATE: 20060308
